FAERS Safety Report 6222694-0 (Version None)
Quarter: 2009Q2

REPORT INFORMATION
  Report Type: 
  Country: None (occurrence: None)
  Receive Date: 20090611
  Receipt Date: 20090609
  Transmission Date: 20091009
  Serious: Yes (Other)
  Sender: FDA-Public Use
  Company Number: A0787612A

PATIENT
  Age: 59 Year
  Sex: Female

DRUGS (2)
  1. COMMIT [Suspect]
  2. NICORETTE [Suspect]

REACTIONS (6)
  - BACK PAIN [None]
  - DEAFNESS [None]
  - HEADACHE [None]
  - HICCUPS [None]
  - INTENTIONAL DRUG MISUSE [None]
  - MUSCLE SPASMS [None]
